FAERS Safety Report 6021968-6 (Version None)
Quarter: 2008Q4

REPORT INFORMATION
  Report Type: 
  Country: None (occurrence: None)
  Receive Date: 20081229
  Receipt Date: 20081218
  Transmission Date: 20090506
  Serious: Yes (Hospitalization)
  Sender: FDA-Public Use
  Company Number: NL-ROCHE-601907

PATIENT
  Sex: Male
  Weight: 90 kg

DRUGS (4)
  1. XELODA [Suspect]
     Dosage: RECEIVED FIFTH COURSE ON 18 NOV 2008
     Route: 048
     Dates: start: 20080826
  2. OXALIPLATIN [Concomitant]
     Dates: start: 20080826
  3. DEXAMETHASONE TAB [Concomitant]
  4. PRIMPERAN TAB [Concomitant]

REACTIONS (3)
  - FATIGUE [None]
  - HYPERCHOLESTEROLAEMIA [None]
  - HYPERTRIGLYCERIDAEMIA [None]
